FAERS Safety Report 12138429 (Version 1)
Quarter: 2016Q1

REPORT INFORMATION
  Report Type: Spontaneous
  Country: US (occurrence: US)
  Receive Date: 20160302
  Receipt Date: 20160302
  Transmission Date: 20160526
  Serious: No
  Sender: FDA-Public Use
  Company Number: US-B.I. PHARMACEUTICALS,INC./RIDGEFIELD-2016-BI-08892BP

PATIENT
  Age: 77 Year
  Sex: Female
  Weight: 54 kg

DRUGS (14)
  1. STRIVERDI RESPIMAT [Suspect]
     Active Substance: OLODATEROL HYDROCHLORIDE
     Dosage: 2.5 MCG
     Route: 055
     Dates: start: 20160109, end: 20160109
  2. CALCIUM CITRATE [Concomitant]
     Active Substance: CALCIUM CITRATE
     Indication: SUPPLEMENTATION THERAPY
     Dosage: DOSE PER APPLICATION: 630 MG/400 IU
     Route: 048
  3. BROMELAIN [Concomitant]
     Active Substance: BROMELAINS
     Indication: SUPPLEMENTATION THERAPY
     Dosage: 200 MG
     Route: 048
  4. TUMERIC [Concomitant]
     Active Substance: TURMERIC
     Indication: SUPPLEMENTATION THERAPY
     Dosage: 2.88 G
     Route: 048
  5. BIOTIN [Concomitant]
     Active Substance: BIOTIN
     Indication: SUPPLEMENTATION THERAPY
     Dosage: 10000 MCG
     Route: 048
  6. COENZYME Q10 [Concomitant]
     Active Substance: UBIDECARENONE
     Indication: SUPPLEMENTATION THERAPY
     Dosage: 100 MG
     Route: 048
  7. TRIAMTERENE. [Concomitant]
     Active Substance: TRIAMTERENE
     Indication: HYPERTENSION
     Dosage: 37.5 MG
     Route: 048
  8. ZOLPIDEM [Concomitant]
     Active Substance: ZOLPIDEM\ZOLPIDEM TARTRATE
     Indication: INSOMNIA
     Dosage: STRENGTH-5MG
     Route: 048
  9. BROVANA [Concomitant]
     Active Substance: ARFORMOTEROL TARTRATE
     Indication: CHRONIC OBSTRUCTIVE PULMONARY DISEASE
     Dosage: 15 MCG
     Route: 055
  10. XOPENEX HFA [Concomitant]
     Active Substance: LEVALBUTEROL TARTRATE
     Indication: CHRONIC OBSTRUCTIVE PULMONARY DISEASE
     Dosage: 30 G
     Route: 055
  11. STRIVERDI RESPIMAT [Suspect]
     Active Substance: OLODATEROL HYDROCHLORIDE
     Indication: CHRONIC OBSTRUCTIVE PULMONARY DISEASE
     Dosage: 5 MCG
     Route: 055
     Dates: start: 20160108, end: 20160108
  12. ALLOPURINOL. [Concomitant]
     Active Substance: ALLOPURINOL
     Indication: GOUT
     Dosage: STRENGT- 100 MG;
     Route: 048
  13. INDOMETHACIN. [Concomitant]
     Active Substance: INDOMETHACIN
     Indication: GOUT
     Dosage: 25 MG
     Route: 048
  14. CLEMASTINE [Concomitant]
     Active Substance: CLEMASTINE
     Indication: HYPERSENSITIVITY
     Dosage: 2.68 MG
     Route: 048

REACTIONS (2)
  - Dyspnoea [Recovered/Resolved]
  - Chest discomfort [Recovered/Resolved]

NARRATIVE: CASE EVENT DATE: 20160108
